FAERS Safety Report 8771516 (Version 4)
Quarter: 2013Q3

REPORT INFORMATION
  Report Type: Spontaneous
  Country: CA (occurrence: CA)
  Receive Date: 20120905
  Receipt Date: 20130904
  Transmission Date: 20140515
  Serious: Yes (Other)
  Sender: FDA-Public Use
  Company Number: CA-WATSON-2012-14944

PATIENT
  Sex: 0

DRUGS (10)
  1. GELNIQUE-CANADA (WATSON LABORATORIES) [Suspect]
     Indication: BLADDER DISORDER
     Dosage: 1 DOSAGE FORMS, DAILY
     Route: 061
     Dates: start: 20120731
  2. GELNIQUE-CANADA (WATSON LABORATORIES) [Suspect]
     Indication: HYPERTONIC BLADDER
     Dosage: 10% IN THE MORNING
     Route: 061
     Dates: start: 20120817
  3. APO AMLODIPINE [Concomitant]
     Indication: BLOOD PRESSURE INCREASED
     Dosage: 5 MG, DAILY
     Route: 048
  4. APO-CIPROFLOX [Concomitant]
     Indication: PRODUCT USED FOR UNKNOWN INDICATION
     Dosage: 250 MG, UNK
  5. CRESTOR [Concomitant]
     Indication: BLOOD CHOLESTEROL INCREASED
     Dosage: 10 MG, DAILY
     Route: 048
  6. GLICLAZIDE [Concomitant]
     Indication: DIABETES MELLITUS
     Dosage: 30 MG, DAILY
     Route: 048
  7. PLAVIX [Concomitant]
     Indication: PRODUCT USED FOR UNKNOWN INDICATION
     Dosage: 75 MG, DAILY
     Route: 048
  8. ONEALPHA [Concomitant]
     Indication: SUPPLEMENTATION THERAPY
     Dosage: 25 MCG, DAILY
     Route: 048
  9. TECTA [Concomitant]
     Indication: PRODUCT USED FOR UNKNOWN INDICATION
     Dosage: 40 MG, DAILY
     Route: 048
  10. VENLAFAXINE [Concomitant]
     Indication: DEPRESSION
     Dosage: 37.5 MG, DAILY
     Route: 048

REACTIONS (4)
  - Angina pectoris [Recovered/Resolved]
  - Chest pain [Recovered/Resolved]
  - Drug effect incomplete [Recovered/Resolved]
  - Hypoaesthesia [Recovered/Resolved]
